FAERS Safety Report 8153121-4 (Version None)
Quarter: 2012Q1

REPORT INFORMATION
  Report Type: 
  Country: None (occurrence: None)
  Receive Date: 20120221
  Receipt Date: 20120209
  Transmission Date: 20120608
  Serious: Yes (Other)
  Sender: FDA-Public Use
  Company Number: US-UCBSA-044863

PATIENT
  Age: 24 Hour
  Sex: Female
  Weight: 1.58 kg

DRUGS (41)
  1. ASACOL [Concomitant]
     Route: 064
  2. PREDNISONE [Concomitant]
     Dosage: DAILY DOSE: 10 MG
     Route: 064
     Dates: start: 20110609
  3. KEFLEX [Concomitant]
     Dosage: 500 MG
     Route: 064
     Dates: start: 20110614, end: 20110621
  4. ACYCLOVIR [Concomitant]
     Indication: CROHN'S DISEASE
     Route: 064
     Dates: start: 20110513, end: 20110628
  5. AUGMENTIN '125' [Concomitant]
     Indication: CROHN'S DISEASE
     Route: 064
     Dates: start: 20110603, end: 20110613
  6. IV STEROIDS [Concomitant]
     Route: 064
  7. MULTI-VITAMINS [Concomitant]
     Route: 064
  8. ASACOL [Concomitant]
     Indication: CROHN'S DISEASE
     Route: 064
     Dates: start: 19991105
  9. CIPROFLOXACIN [Concomitant]
     Indication: CROHN'S DISEASE
     Route: 064
     Dates: start: 20100706
  10. PREDNISONE [Concomitant]
     Dosage: DAILY DOSE: 20 MG
     Route: 064
     Dates: start: 20110526, end: 20110608
  11. PREDNISONE [Concomitant]
     Route: 064
  12. PHENERGAN [Concomitant]
     Indication: NAUSEA
     Dosage: 25 MG TWICE A DAY
     Route: 064
     Dates: start: 20110412
  13. PERIDEX [Concomitant]
     Dosage: 3 TIMES DAILY
     Route: 064
  14. SOLU-MEDROL [Concomitant]
     Route: 064
  15. ALBUTEROL [Concomitant]
     Route: 064
  16. MACROBID [Concomitant]
     Indication: CROHN'S DISEASE
     Route: 064
     Dates: start: 20110603, end: 20110820
  17. KEFLEX [Concomitant]
     Dosage: 500 MG
     Route: 064
     Dates: start: 20110614, end: 20110621
  18. PRILOSEC [Concomitant]
     Indication: DYSPEPSIA
     Route: 064
     Dates: start: 20110412
  19. DIPHENOXYLATE HCL + ATROPINE SULFATE [Concomitant]
     Route: 064
  20. LOMOTIL [Concomitant]
     Indication: DIARRHOEA
     Dosage: 2.5-0.025 MG TID
     Route: 064
  21. FOL CAPS OMEGA 3 [Concomitant]
     Route: 064
  22. PREPARATION H OINTMENT [Concomitant]
     Dosage: 4 TIMES AS NEEDED
     Route: 064
  23. CIMZIA [Suspect]
     Indication: CROHN'S DISEASE
     Route: 064
     Dates: start: 20101201, end: 20110820
  24. PREDNISONE [Concomitant]
     Dosage: 60 MG
     Route: 064
     Dates: end: 20110601
  25. NYSTATIN [Concomitant]
     Dosage: FOUR TIMES DAILY
     Route: 064
  26. PREDNISONE [Concomitant]
     Dosage: DAILY DOSE: 40 MG
     Route: 064
     Dates: start: 20110428, end: 20110511
  27. KEFLEX [Concomitant]
     Indication: URINARY TRACT INFECTION
     Route: 064
     Dates: start: 20110811, end: 20110823
  28. VANCOMYCIN [Concomitant]
     Dosage: FOR TWO DAYS
     Route: 064
  29. PREDNISONE [Concomitant]
     Indication: CROHN'S DISEASE
     Dosage: DAILY DOSE: 60 MG
     Route: 064
     Dates: start: 20110601
  30. PREDNISONE [Concomitant]
     Route: 064
     Dates: start: 20110601, end: 20110601
  31. IMODIUM [Concomitant]
     Route: 064
  32. OXYCODONE HCL [Concomitant]
     Indication: PAIN
     Dosage: ONE TABLET EVERY FOUR TO SIX HOURS
     Route: 064
  33. PANTOPRAZOLE [Concomitant]
     Route: 064
  34. UNASYN [Concomitant]
     Indication: INFECTION
     Route: 064
     Dates: start: 20110814, end: 20110823
  35. PREDNISONE [Concomitant]
     Dosage: DAILY DOSE: 25 MG
     Route: 064
     Dates: start: 20110512, end: 20110525
  36. PREDNISONE [Concomitant]
     Dosage: DAILY DOSE: 50 MG
     Route: 064
     Dates: start: 20110414, end: 20110427
  37. PREDNISONE [Concomitant]
     Dosage: DAILY DOSE: 60 MG
     Route: 064
     Dates: start: 20110331, end: 20110413
  38. ACTOS [Concomitant]
     Indication: GESTATIONAL DIABETES
     Dosage: 15 MG DAILY
     Route: 064
  39. ZOLOFT [Concomitant]
     Dosage: DAILY DOSE: 50 MG
     Route: 064
  40. KEFLEX [Concomitant]
     Indication: CROHN'S DISEASE
     Route: 064
     Dates: start: 20110811, end: 20110823
  41. ORAL STEROIDS [Concomitant]
     Route: 064

REACTIONS (2)
  - FOETAL EXPOSURE DURING PREGNANCY [None]
  - PREMATURE BABY [None]
